FAERS Safety Report 20074009 (Version 8)
Quarter: 2021Q4

REPORT INFORMATION
  Report Type: Spontaneous
  Country: PT (occurrence: PT)
  Receive Date: 20211116
  Receipt Date: 20211231
  Transmission Date: 20220303
  Serious: Yes (Life-Threatening, Hospitalization, Other)
  Sender: FDA-Public Use
  Company Number: PT-NOVARTISPH-NVSC2021PT260825

PATIENT
  Age: 80 Year
  Sex: Male

DRUGS (2)
  1. OMEPRAZOLE [Interacting]
     Active Substance: OMEPRAZOLE
     Indication: Dyspepsia
     Dosage: UNK, UNKNOWN
     Route: 065
  2. FUROSEMIDE [Interacting]
     Active Substance: FUROSEMIDE
     Indication: Hypertension
     Dosage: UNK UNK, UNKNOWN
     Route: 065

REACTIONS (22)
  - Hypomagnesaemia [Recovered/Resolved]
  - Altered state of consciousness [Recovered/Resolved]
  - Parkinsonism [Recovered/Resolved]
  - Seizure [Recovered/Resolved]
  - Hyperparathyroidism [Recovered/Resolved]
  - Gait disturbance [Recovered/Resolved]
  - Weight decreased [Recovered/Resolved]
  - Feeling cold [Recovered/Resolved]
  - Diarrhoea [Recovered/Resolved]
  - Hypocalcaemia [Recovered/Resolved]
  - Vomiting [Recovered/Resolved]
  - Decreased appetite [Recovered/Resolved]
  - Diverticulum intestinal [Unknown]
  - Musculoskeletal stiffness [Recovered/Resolved]
  - Intestinal obstruction [Unknown]
  - Intention tremor [Recovered/Resolved]
  - Muscle contractions involuntary [Recovered/Resolved]
  - Urine calcium decreased [Unknown]
  - Agitation [Unknown]
  - Hyperparathyroidism secondary [Recovered/Resolved]
  - Subileus [Unknown]
  - Parkinsonism [Unknown]
